FAERS Safety Report 9940584 (Version 2)
Quarter: 2014Q1

REPORT INFORMATION
  Report Type: Spontaneous
  Country: US (occurrence: US)
  Receive Date: 20140303
  Receipt Date: 20140326
  Transmission Date: 20141002
  Serious: No
  Sender: FDA-Public Use
  Company Number: US-PFIZER INC-2014060259

PATIENT
  Age: 74 Year
  Sex: Female
  Weight: 58.05 kg

DRUGS (6)
  1. CELEBREX [Suspect]
     Indication: OSTEOARTHRITIS
     Dosage: 200 MG, DAILY (EVERY MORNING)
     Route: 048
     Dates: start: 20140228
  2. CELEBREX [Suspect]
     Indication: ARTHRALGIA
  3. ALENDRONATE [Concomitant]
     Indication: BONE DENSITY ABNORMAL
     Dosage: 70 MG, WEEKLY (EVERY FRIDAY)
  4. LUMIGAN [Concomitant]
     Indication: GLAUCOMA
     Dosage: ONE DROP IN EACH EYE DAILY AT NIGHT
  5. NAPROXEN [Concomitant]
     Dosage: UNK
  6. ASPIRIN [Concomitant]
     Indication: ANTICOAGULANT THERAPY
     Dosage: UNK

REACTIONS (2)
  - Musculoskeletal pain [Unknown]
  - Neck pain [Unknown]
